FAERS Safety Report 7554772-8 (Version None)
Quarter: 2011Q2

REPORT INFORMATION
  Report Type: 
  Country: None (occurrence: None)
  Receive Date: 20110614
  Receipt Date: 20110614
  Transmission Date: 20111010
  Serious: No
  Sender: FDA-Public Use
  Company Number: None

PATIENT
  Age: 28 Year
  Sex: Female
  Weight: 86.1834 kg

DRUGS (1)
  1. TOPIRAMATE [Suspect]

REACTIONS (7)
  - PAIN [None]
  - MIGRAINE [None]
  - PRODUCT SUBSTITUTION ISSUE [None]
  - JAW DISORDER [None]
  - DRUG INEFFECTIVE [None]
  - SWELLING [None]
  - SPEECH DISORDER [None]
